FAERS Safety Report 12714422 (Version 1)
Quarter: 2016Q3

REPORT INFORMATION
  Report Type: Spontaneous
  Country: US (occurrence: US)
  Receive Date: 20160905
  Receipt Date: 20160905
  Transmission Date: 20161109
  Serious: No
  Sender: FDA-Public Use
  Company Number: US-JAZZ-2016-US-009063

PATIENT
  Age: 32 Year
  Sex: Female

DRUGS (27)
  1. XYREM [Suspect]
     Active Substance: SODIUM OXYBATE
     Indication: NARCOLEPSY
     Dosage: 2.5 G, BID
     Route: 048
     Dates: start: 201510, end: 201510
  2. AZELASTINE [Concomitant]
     Active Substance: AZELASTINE
  3. CALCIUM D [Concomitant]
     Active Substance: CALCIUM\VITAMIN D
  4. ZINC CHELATE [Concomitant]
  5. KETOPROFEN. [Concomitant]
     Active Substance: KETOPROFEN
  6. MELATONIN [Concomitant]
     Active Substance: MELATONIN
  7. ALLERGY [Concomitant]
     Active Substance: UNSPECIFIED INGREDIENT
  8. GINKGO BILOBA [Concomitant]
     Active Substance: GINKGO
  9. N-ACETYL CYSTEINE [Concomitant]
  10. DEXTROAMPHETAMINE ER [Concomitant]
  11. ZOLPIDEM TARTRATE ER [Concomitant]
     Active Substance: ZOLPIDEM TARTRATE
  12. XYREM [Suspect]
     Active Substance: SODIUM OXYBATE
     Indication: CATAPLEXY
     Dosage: DOSE ADJUSTMENTS
     Route: 048
     Dates: start: 201510, end: 201510
  13. XYREM [Suspect]
     Active Substance: SODIUM OXYBATE
     Dosage: 3.5 G, BID
     Route: 048
     Dates: start: 201510
  14. MAGNESIUM GLUCONATE [Concomitant]
     Active Substance: MAGNESIUM GLUCONATE
  15. VALTREX [Concomitant]
     Active Substance: VALACYCLOVIR HYDROCHLORIDE
  16. ALLEGRA ALLERGY [Concomitant]
     Active Substance: FEXOFENADINE HYDROCHLORIDE
  17. IBUPROFEN. [Concomitant]
     Active Substance: IBUPROFEN
  18. LIDOCAINE. [Concomitant]
     Active Substance: LIDOCAINE
  19. NIACIN. [Concomitant]
     Active Substance: NIACIN
  20. PROAIR HFA [Concomitant]
     Active Substance: ALBUTEROL SULFATE
  21. MULTIVITAMINS [Concomitant]
     Active Substance: VITAMINS
  22. GUAIFENESIN. [Concomitant]
     Active Substance: GUAIFENESIN
  23. LYSINE [Concomitant]
     Active Substance: LYSINE
  24. VITAMIN D [Concomitant]
     Active Substance: CHOLECALCIFEROL
  25. TRIAMCINOLONE [Concomitant]
     Active Substance: TRIAMCINOLONE
  26. FLUNISOLIDE. [Concomitant]
     Active Substance: FLUNISOLIDE
  27. LORYNA [Concomitant]
     Active Substance: DROSPIRENONE\ETHINYL ESTRADIOL

REACTIONS (1)
  - Migraine [Unknown]

NARRATIVE: CASE EVENT DATE: 20160513
